FAERS Safety Report 9270513 (Version 2)
Quarter: 2013Q2

REPORT INFORMATION
  Report Type: Report from Study
  Country: US (occurrence: US)
  Receive Date: 20130503
  Receipt Date: 20130530
  Transmission Date: 20140414
  Serious: Yes (Hospitalization)
  Sender: FDA-Public Use
  Company Number: US-US-EMD SERONO, INC.-7209025

PATIENT
  Age: 56 Year
  Sex: Female

DRUGS (2)
  1. REBIF [Suspect]
     Indication: MULTIPLE SCLEROSIS
     Route: 058
     Dates: start: 20090827, end: 2013
  2. REBIF [Suspect]
     Route: 058
     Dates: start: 2013

REACTIONS (2)
  - Intervertebral disc protrusion [Recovered/Resolved]
  - Multiple sclerosis relapse [Recovered/Resolved]
